FAERS Safety Report 18106021 (Version 1)
Quarter: 2020Q3

REPORT INFORMATION
  Report Type: Other
  Country: FR (occurrence: FR)
  Receive Date: 20200804
  Receipt Date: 20200804
  Transmission Date: 20201103
  Serious: Yes (Other)
  Sender: FDA-Public Use
  Company Number: FR-HEALTHCARE PHARMACEUTICALS LTD.-2088093

PATIENT
  Age: 72 Year
  Sex: Male

DRUGS (3)
  1. LIPIODOL [Suspect]
     Active Substance: ETHIODIZED OIL
     Route: 065
  2. DOXORUBICIN HYDROCHLORIDE. [Suspect]
     Active Substance: DOXORUBICIN HYDROCHLORIDE
     Indication: CHOLANGIOCARCINOMA
     Route: 065
     Dates: start: 201707
  3. SORAFENIB [Suspect]
     Active Substance: SORAFENIB
     Route: 065

REACTIONS (2)
  - Treatment failure [Unknown]
  - Drug tolerance decreased [Unknown]
